FAERS Safety Report 11058917 (Version 1)
Quarter: 2015Q2

REPORT INFORMATION
  Report Type: Spontaneous
  Country: US (occurrence: None)
  Receive Date: 20150416
  Receipt Date: 20150416
  Transmission Date: 20150821
  Serious: Yes (Hospitalization)
  Sender: FDA-Public Use
  Company Number: AUR-APL-2014-06763

PATIENT
  Age: 60 Year
  Sex: Male
  Weight: 50 kg

DRUGS (18)
  1. HYDROCODONE [Concomitant]
     Active Substance: HYDROCODONE
  2. GABAPENTIN. [Concomitant]
     Active Substance: GABAPENTIN
  3. ASPIRIN (ACETYLSALICYLIC ACID) [Concomitant]
     Active Substance: ASPIRIN
  4. NITROGLYCERIN (GLYCERYL TRINITRATE) [Concomitant]
     Active Substance: NITROGLYCERIN
  5. ADVAIR (FLUTICASONE PROPIONTE, SALMETEROL XINAFOATE) [Concomitant]
  6. PLAVIX (CLOPIDEGREL BISULFATE) [Concomitant]
  7. PRAVASTATIN [Concomitant]
     Active Substance: PRAVASTATIN\PRAVASTATIN SODIUM
  8. METOPROLOL [Concomitant]
     Active Substance: METOPROLOL
  9. IPRATROPIUM BROMIDE AND ALBUTEROL SULFATE) (IPRATROPIUM BROMIDE, SALBUTAMOL SULFATE) [Concomitant]
  10. ACETAMINOPHEN (PARACETAMOL) [Concomitant]
     Active Substance: ACETAMINOPHEN
  11. LISINOPRIL. [Suspect]
     Active Substance: LISINOPRIL
     Indication: HYPERTENSION
     Route: 048
     Dates: start: 20110215, end: 20140601
  12. VOLTAREN [Suspect]
     Active Substance: DICLOFENAC SODIUM
     Indication: INTERVERTEBRAL DISC DEGENERATION
     Route: 048
     Dates: start: 201402, end: 20140601
  13. WELLBUTRIN [Concomitant]
     Active Substance: BUPROPION HYDROCHLORIDE
  14. ZANTAC [Concomitant]
     Active Substance: RANITIDINE HYDROCHLORIDE
  15. VOLTAREN [Suspect]
     Active Substance: DICLOFENAC SODIUM
     Indication: OSTEOARTHRITIS
     Route: 048
     Dates: start: 201402, end: 20140601
  16. SPIRIVA (TIOTROPIUM BROMIDE) [Concomitant]
  17. ISOSORBIDE [Concomitant]
     Active Substance: ISOSORBIDE
  18. MARIJUANA (CANNABIS SATIVA) (CANNABIS SATIVA) [Concomitant]
     Active Substance: CANNABIS SATIVA SUBSP. INDICA TOP

REACTIONS (2)
  - Acute kidney injury [None]
  - Dehydration [None]

NARRATIVE: CASE EVENT DATE: 20140601
